FAERS Safety Report 9639717 (Version 1)
Quarter: 2013Q4

REPORT INFORMATION
  Report Type: Spontaneous
  Country: US (occurrence: None)
  Receive Date: 20131021
  Receipt Date: 20131021
  Transmission Date: 20140711
  Serious: Yes (Other)
  Sender: FDA-Public Use
  Company Number: None

PATIENT
  Age: 63 Year
  Sex: Male

DRUGS (2)
  1. ATENOLOL [Suspect]
     Indication: CARDIAC DISORDER
     Route: 048
     Dates: start: 2002, end: 201308
  2. CARVEDILOL [Suspect]

REACTIONS (4)
  - Muscle spasms [None]
  - Muscle spasms [None]
  - General symptom [None]
  - Condition aggravated [None]
